FAERS Safety Report 8357651-1 (Version None)
Quarter: 2012Q2

REPORT INFORMATION
  Report Type: 
  Country: None (occurrence: None)
  Receive Date: 20120511
  Receipt Date: 20120327
  Transmission Date: 20120825
  Serious: No
  Sender: FDA-Public Use
  Company Number: TCI2012A00527

PATIENT
  Age: 81 Year
  Sex: Female

DRUGS (2)
  1. LANSOPRAZOLE [Suspect]
     Indication: GASTROOESOPHAGEAL REFLUX DISEASE
     Dosage: 30;15 MG (30;15 MG, 1 IN 1 D), PER ORAL
     Route: 048
     Dates: start: 20110907, end: 20120207
  2. LANSOPRAZOLE [Suspect]
     Indication: GASTROOESOPHAGEAL REFLUX DISEASE
     Dosage: 30;15 MG (30;15 MG, 1 IN 1 D), PER ORAL
     Route: 048
     Dates: start: 20120215

REACTIONS (1)
  - VISION BLURRED [None]
